FAERS Safety Report 11459289 (Version 1)
Quarter: 2015Q3

REPORT INFORMATION
  Report Type: Spontaneous
  Country: US (occurrence: US)
  Receive Date: 20150904
  Receipt Date: 20150904
  Transmission Date: 20151125
  Serious: No
  Sender: FDA-Public Use
  Company Number: US-JNJFOC-20150806803

PATIENT
  Age: 81 Year
  Sex: Female
  Weight: 56.7 kg

DRUGS (1)
  1. INVOKANA [Suspect]
     Active Substance: CANAGLIFLOZIN
     Indication: TYPE 2 DIABETES MELLITUS
     Route: 048
     Dates: start: 201507

REACTIONS (3)
  - Nonspecific reaction [Not Recovered/Not Resolved]
  - Pain in extremity [Not Recovered/Not Resolved]
  - Urine output increased [Not Recovered/Not Resolved]

NARRATIVE: CASE EVENT DATE: 201507
